FAERS Safety Report 6896988-X (Version None)
Quarter: 2010Q3

REPORT INFORMATION
  Report Type: 
  Country: None (occurrence: None)
  Receive Date: 20100802
  Receipt Date: 20070306
  Transmission Date: 20110219
  Serious: No
  Sender: FDA-Public Use
  Company Number: US-PFIZER INC-2007018555

PATIENT
  Sex: Male

DRUGS (5)
  1. LYRICA [Suspect]
  2. NEURONTIN [Suspect]
  3. SEROQUEL [Suspect]
     Indication: BIPOLAR I DISORDER
  4. RISPERDAL [Suspect]
     Indication: BIPOLAR I DISORDER
  5. RISPERDAL [Suspect]
     Indication: SCHIZOPHRENIA

REACTIONS (2)
  - FATIGUE [None]
  - SOMNOLENCE [None]
